FAERS Safety Report 12816132 (Version 1)
Quarter: 2016Q4

REPORT INFORMATION
  Report Type: Report from Study
  Country: US (occurrence: US)
  Receive Date: 20161006
  Receipt Date: 20161006
  Transmission Date: 20170207
  Serious: No
  Sender: FDA-Public Use
  Company Number: US-AMGEN-USASL2016049337

PATIENT
  Age: 84 Year
  Sex: Female

DRUGS (1)
  1. PROLIA [Suspect]
     Active Substance: DENOSUMAB
     Indication: PRODUCT USED FOR UNKNOWN INDICATION
     Dosage: UNK
     Route: 065

REACTIONS (7)
  - Arthropathy [Unknown]
  - Rotator cuff syndrome [Unknown]
  - Device fastener issue [Unknown]
  - Bursitis [Recovering/Resolving]
  - Groin pain [Unknown]
  - Dysstasia [Unknown]
  - Balance disorder [Unknown]
